FAERS Safety Report 9813419 (Version 1)
Quarter: 2014Q1

REPORT INFORMATION
  Report Type: Spontaneous
  Country: US (occurrence: None)
  Receive Date: 20140110
  Receipt Date: 20140110
  Transmission Date: 20141002
  Serious: Yes (Other)
  Sender: FDA-Public Use
  Company Number: None

PATIENT
  Age: 26 Year
  Sex: Female
  Weight: 75 kg

DRUGS (1)
  1. HALONACE [Suspect]
     Indication: PSYCHOTIC DISORDER
     Dosage: 1 PILL
     Route: 048
     Dates: start: 20140108, end: 20140109

REACTIONS (6)
  - Musculoskeletal stiffness [None]
  - Abdominal pain [None]
  - Headache [None]
  - Fatigue [None]
  - Change in sustained attention [None]
  - Insomnia [None]
